FAERS Safety Report 4478291-0 (Version None)
Quarter: 2004Q4

REPORT INFORMATION
  Report Type: 
  Country: None (occurrence: None)
  Receive Date: 20041019
  Receipt Date: 20040921
  Transmission Date: 20050328
  Serious: Yes (Hospitalization)
  Sender: FDA-Public Use
  Company Number: US-ROCHE-381258

PATIENT
  Age: 69 Year
  Sex: Female
  Weight: 67.1 kg

DRUGS (7)
  1. PEGASYS [Suspect]
     Route: 058
     Dates: start: 20040802, end: 20040917
  2. COPEGUS [Suspect]
     Route: 048
     Dates: start: 20040802, end: 20040915
  3. COPEGUS [Suspect]
     Route: 048
     Dates: start: 20040915, end: 20040917
  4. ATENOLOL [Concomitant]
     Indication: HYPERTENSION
  5. TRIAMTERENE [Concomitant]
     Indication: HYPERTENSION
  6. LISINOPRIL [Concomitant]
     Indication: HYPERTENSION
  7. LEVOTHYROXINE SODIUM [Concomitant]
     Indication: HYPOTHYROIDISM

REACTIONS (8)
  - ANAEMIA [None]
  - AORTIC VALVE INCOMPETENCE [None]
  - FATIGUE [None]
  - HEADACHE [None]
  - HEART RATE DECREASED [None]
  - HYPERTENSION [None]
  - HYPOTENSION [None]
  - LOSS OF CONSCIOUSNESS [None]
